FAERS Safety Report 6573942-9 (Version None)
Quarter: 2010Q1

REPORT INFORMATION
  Report Type: 
  Country: None (occurrence: None)
  Receive Date: 20100208
  Receipt Date: 20100129
  Transmission Date: 20100710
  Serious: Yes (Other)
  Sender: FDA-Public Use
  Company Number: US-PFIZER INC-2009315294

PATIENT
  Sex: Female
  Weight: 67.12 kg

DRUGS (9)
  1. EPLERENONE [Suspect]
     Indication: HYPERTENSION
     Dosage: 50 MG, 1X/DAY
     Route: 048
     Dates: start: 20100101
  2. EPLERENONE [Suspect]
     Indication: BLOOD POTASSIUM DECREASED
  3. NORVASC [Suspect]
  4. ATENOLOL [Suspect]
     Dosage: 75 MG, UNK
  5. HYDROCHLOROTHIAZIDE [Suspect]
  6. XANAX [Suspect]
  7. LISINOPRIL [Suspect]
  8. CARDURA [Suspect]
  9. ALISKIREN [Suspect]
     Dosage: UNK MG, UNK

REACTIONS (13)
  - ABDOMINAL PAIN UPPER [None]
  - BACK PAIN [None]
  - BLOOD PRESSURE INADEQUATELY CONTROLLED [None]
  - COUGH [None]
  - DIZZINESS [None]
  - DRUG INEFFECTIVE [None]
  - HEART RATE INCREASED [None]
  - INSOMNIA [None]
  - MALAISE [None]
  - PAIN IN EXTREMITY [None]
  - PARAESTHESIA [None]
  - SOMNOLENCE [None]
  - VERTIGO [None]
